FAERS Safety Report 5116267-0 (Version None)
Quarter: 2006Q3

REPORT INFORMATION
  Report Type: 
  Country: None (occurrence: None)
  Receive Date: 20060927
  Receipt Date: 20060925
  Transmission Date: 20061208
  Serious: Yes (Death)
  Sender: FDA-Public Use
  Company Number: 6552

PATIENT
  Age: 55 Year
  Sex: Male

DRUGS (2)
  1. NOGITECAN HYDROCHLORIDE [Suspect]
     Dosage: .75MGM2 PER DAY
     Route: 042
  2. AMRUBICIN HYDROCHLORIDE [Suspect]
     Indication: DRUG USE FOR UNKNOWN INDICATION
     Dosage: 35MGM2 PER DAY
     Route: 065

REACTIONS (2)
  - DEATH [None]
  - SEPSIS [None]
